FAERS Safety Report 6057471-7 (Version None)
Quarter: 2009Q1

REPORT INFORMATION
  Report Type: 
  Country: None (occurrence: None)
  Receive Date: 20090126
  Receipt Date: 20090126
  Transmission Date: 20090719
  Serious: Yes (Disabling)
  Sender: FDA-Public Use
  Company Number: None

PATIENT
  Age: 2 Year
  Sex: Male
  Weight: 13.6079 kg

DRUGS (1)
  1. PREDNISOLONE [Suspect]
     Indication: SINUSITIS
     Dosage: 3/4 2 TIME BUCCAL
     Route: 002
     Dates: start: 20081215, end: 20081219

REACTIONS (6)
  - ABASIA [None]
  - ACUTE LEUKAEMIA [None]
  - ASTHENIA [None]
  - BODY TEMPERATURE INCREASED [None]
  - CRYING [None]
  - PAIN [None]
